FAERS Safety Report 8242700-1 (Version None)
Quarter: 2012Q1

REPORT INFORMATION
  Report Type: 
  Country: None (occurrence: None)
  Receive Date: 20120329
  Receipt Date: 20120316
  Transmission Date: 20120608
  Serious: No
  Sender: FDA-Public Use
  Company Number: US-B.I. PHARMACEUTICALS,INC./RIDGEFIELD-2012-BP-02982BP

PATIENT
  Sex: Female
  Weight: 78.02 kg

DRUGS (3)
  1. ATROVENT HFA [Suspect]
     Indication: CHRONIC OBSTRUCTIVE PULMONARY DISEASE
  2. ATROVENT HFA [Suspect]
     Indication: EMPHYSEMA
     Route: 055
     Dates: start: 20110920
  3. DIOVAN HCT [Concomitant]
     Indication: HYPERTENSION
     Route: 048
     Dates: start: 20100622

REACTIONS (5)
  - TREMOR [None]
  - FEAR [None]
  - DIZZINESS [None]
  - PARAESTHESIA [None]
  - DYSPNOEA [None]
